FAERS Safety Report 9536342 (Version 1)
Quarter: 2013Q2

REPORT INFORMATION
  Report Type: Spontaneous
  Country: US (occurrence: None)
  Receive Date: 20130507
  Receipt Date: 20130507
  Transmission Date: 20140414
  Serious: Yes (Other)
  Sender: FDA-Public Use
  Company Number: PHEH2013US001125

PATIENT
  Age: 72 Year
  Sex: Female

DRUGS (2)
  1. AFINITOR (RAD) UNKNOWN [Suspect]
     Indication: BREAST CANCER
     Route: 048
     Dates: start: 201210, end: 201210
  2. EXEMESTANE (EXEMESTANE) [Concomitant]

REACTIONS (4)
  - Pneumonitis [None]
  - Quality of life decreased [None]
  - Cough [None]
  - Dyspnoea [None]
